FAERS Safety Report 20945462 (Version 2)
Quarter: 2022Q2

REPORT INFORMATION
  Report Type: Spontaneous
  Country: US (occurrence: US)
  Receive Date: 20220610
  Receipt Date: 20220615
  Transmission Date: 20220721
  Serious: Yes (Other)
  Sender: FDA-Public Use
  Company Number: US-GLAXOSMITHKLINE-US2022089026

PATIENT

DRUGS (1)
  1. ZEJULA [Suspect]
     Active Substance: NIRAPARIB
     Indication: Ovarian cancer
     Dosage: 200 MG, QD
     Route: 048
     Dates: start: 20220520

REACTIONS (6)
  - Neuropathy peripheral [Unknown]
  - Pain in extremity [Not Recovered/Not Resolved]
  - Abdominal discomfort [Unknown]
  - Abdominal distension [Unknown]
  - Nerve injury [Unknown]
  - Fall [Unknown]
